FAERS Safety Report 6580370-9 (Version None)
Quarter: 2010Q1

REPORT INFORMATION
  Report Type: 
  Country: None (occurrence: None)
  Receive Date: 20100212
  Receipt Date: 20100202
  Transmission Date: 20100710
  Serious: Yes (Other)
  Sender: FDA-Public Use
  Company Number: JP-SANOFI-AVENTIS-2009SA006692

PATIENT
  Age: 62 Year
  Sex: Male

DRUGS (11)
  1. OXALIPLATIN [Suspect]
     Indication: LARGE INTESTINE CARCINOMA
     Route: 041
  2. OXALIPLATIN [Suspect]
     Route: 041
     Dates: start: 20091118, end: 20091118
  3. AVASTIN [Suspect]
     Indication: RECTAL CANCER
     Route: 041
     Dates: start: 20090107, end: 20090107
  4. AVASTIN [Suspect]
     Route: 041
     Dates: start: 20091118, end: 20091118
  5. AMLODIPINE [Suspect]
     Indication: HYPERTENSION
     Route: 048
  6. VALSARTAN [Suspect]
     Indication: HYPERTENSION
     Route: 048
  7. DEXAMETHASONE SODIUM PHOSPHATE [Suspect]
     Route: 048
  8. 5-FU [Concomitant]
     Indication: LARGE INTESTINE CARCINOMA
  9. CALCIUM LEVOFOLINATE [Concomitant]
  10. TAKEPRON [Concomitant]
  11. NASEA [Concomitant]

REACTIONS (2)
  - DISSEMINATED INTRAVASCULAR COAGULATION [None]
  - PYREXIA [None]
